FAERS Safety Report 21021155 (Version 1)
Quarter: 2022Q2

REPORT INFORMATION
  Report Type: Spontaneous
  Country: FR (occurrence: FR)
  Receive Date: 20220629
  Receipt Date: 20220629
  Transmission Date: 20220721
  Serious: Yes (Hospitalization, Other)
  Sender: FDA-Public Use
  Company Number: None

PATIENT
  Age: 78 Year
  Sex: Female
  Weight: 103 kg

DRUGS (2)
  1. HYDROCHLOROTHIAZIDE\IRBESARTAN [Suspect]
     Active Substance: HYDROCHLOROTHIAZIDE\IRBESARTAN
     Indication: Wrong product administered
     Dosage: 2100 MG, TAKING 7 TABLETS OF 300 MG
     Route: 048
     Dates: start: 20220530
  2. CORDARONE [Concomitant]
     Active Substance: AMIODARONE HYDROCHLORIDE
     Dosage: NOT ADMINISTERED

REACTIONS (3)
  - Atrial fibrillation [Recovering/Resolving]
  - Atrial tachycardia [Recovering/Resolving]
  - Wrong product administered [Unknown]

NARRATIVE: CASE EVENT DATE: 20220530
